FAERS Safety Report 12871508 (Version 1)
Quarter: 2016Q4

REPORT INFORMATION
  Report Type: Spontaneous
  Country: US (occurrence: US)
  Receive Date: 20161021
  Receipt Date: 20161021
  Transmission Date: 20170207
  Serious: No
  Sender: FDA-Public Use
  Company Number: None

PATIENT

DRUGS (2)
  1. ROPIVACAINE HYDROCHLORIDE ROPIVACAINE [Suspect]
     Active Substance: ROPIVACAINE HYDROCHLORIDE
  2. CEFAZOLIN SODIUM CEFAZOLIN [Suspect]
     Active Substance: CEFAZOLIN SODIUM

REACTIONS (1)
  - Wrong drug administered [None]
